FAERS Safety Report 15454896 (Version 2)
Quarter: 2018Q4

REPORT INFORMATION
  Report Type: Spontaneous
  Country: IT (occurrence: IT)
  Receive Date: 20181002
  Receipt Date: 20181129
  Transmission Date: 20190204
  Serious: Yes (Hospitalization)
  Sender: FDA-Public Use
  Company Number: IT-ASTRAZENECA-2018SF16499

PATIENT
  Age: 20 Year
  Sex: Female

DRUGS (4)
  1. ESTRADIOLO/DIDROGESTERONE [Concomitant]
     Dosage: 1.0DF UNKNOWN
  2. DEPAKIN [Suspect]
     Active Substance: VALPROATE SODIUM
     Indication: MANIA
     Dosage: 10.0DF ONCE/SINGLE ADMINISTRATION
     Route: 048
     Dates: start: 20180826, end: 20180826
  3. OMEPRAZOLE. [Concomitant]
     Active Substance: OMEPRAZOLE
  4. QUETIAPINE FUMARATE. [Suspect]
     Active Substance: QUETIAPINE FUMARATE
     Indication: PERSONALITY DISORDER
     Dosage: 1500.0MG ONCE/SINGLE ADMINISTRATION
     Route: 048
     Dates: start: 20180826, end: 20180826

REACTIONS (5)
  - Drug abuse [Recovered/Resolved]
  - Intentional self-injury [Recovered/Resolved]
  - Tachycardia [Recovered/Resolved]
  - Sluggishness [Recovered/Resolved]
  - Sopor [Recovered/Resolved]

NARRATIVE: CASE EVENT DATE: 20180826
